FAERS Safety Report 13737839 (Version 1)
Quarter: 2017Q3

REPORT INFORMATION
  Report Type: Spontaneous
  Country: US (occurrence: US)
  Receive Date: 20170710
  Receipt Date: 20170710
  Transmission Date: 20171127
  Serious: Yes (Other)
  Sender: FDA-Public Use
  Company Number: US-SAOL THERAPEUTICS-2016SAO00600

PATIENT
  Sex: Male

DRUGS (4)
  1. TECFIDERA [Concomitant]
     Active Substance: DIMETHYL FUMARATE
  2. BACLOFEN. [Suspect]
     Active Substance: BACLOFEN
     Dosage: 149.9 ?G, \DAY
     Route: 037
     Dates: start: 20160829
  3. ORAL BACLOFEN [Concomitant]
     Active Substance: BACLOFEN
     Route: 048
  4. BACLOFEN. [Suspect]
     Active Substance: BACLOFEN
     Dosage: 561.2 ?G, \DAY
     Route: 037
     Dates: end: 20160829

REACTIONS (4)
  - Therapy non-responder [Recovered/Resolved]
  - Post lumbar puncture syndrome [Recovered/Resolved]
  - Device damage [Recovered/Resolved]
  - Muscle spasticity [Recovered/Resolved]

NARRATIVE: CASE EVENT DATE: 2013
